FAERS Safety Report 8042405-6 (Version None)
Quarter: 2011Q4

REPORT INFORMATION
  Report Type: 
  Country: None (occurrence: None)
  Receive Date: 20111209
  Receipt Date: 20110928
  Transmission Date: 20120403
  Serious: Yes (Hospitalization)
  Sender: FDA-Public Use
  Company Number: TH-2011-00385

PATIENT
  Sex: Male

DRUGS (2)
  1. UNSPECIFIED HUMAN IMMUNODEFICIENCY VIRUS MEDICATIONS [Concomitant]
  2. EGRIFTA [Suspect]
     Indication: LIPODYSTROPHY ACQUIRED
     Dosage: 1 IN 1 D, SUBCUTANEOUS
     Route: 058
     Dates: start: 20110801

REACTIONS (1)
  - GASTRIC INFECTION [None]
